FAERS Safety Report 7861348-1 (Version None)
Quarter: 2011Q4

REPORT INFORMATION
  Report Type: 
  Country: None (occurrence: None)
  Receive Date: 20111027
  Receipt Date: 20111027
  Transmission Date: 20120403
  Serious: No
  Sender: FDA-Public Use
  Company Number: US-BAYER-2011-070889

PATIENT
  Age: 62 Year
  Sex: Female
  Weight: 60 kg

DRUGS (3)
  1. TRAZODONE HYDROCHLORIDE [Concomitant]
  2. NAPROXEN (ALEVE) [Suspect]
  3. EFFEXOR [Concomitant]

REACTIONS (1)
  - NO ADVERSE EVENT [None]
